APPROVED DRUG PRODUCT: ESOMEPRAZOLE MAGNESIUM
Active Ingredient: ESOMEPRAZOLE MAGNESIUM
Strength: EQ 40MG BASE
Dosage Form/Route: CAPSULE, DELAYED REL PELLETS;ORAL
Application: A207265 | Product #001
Applicant: HEC PHARM USA INC
Approved: May 18, 2018 | RLD: No | RS: No | Type: DISCN